FAERS Safety Report 6174920-4 (Version None)
Quarter: 2009Q2

REPORT INFORMATION
  Report Type: 
  Country: None (occurrence: None)
  Receive Date: 20090430
  Receipt Date: 20081007
  Transmission Date: 20091009
  Serious: No
  Sender: FDA-Public Use
  Company Number: US-ASTRAZENECA-2008UW21888

PATIENT
  Age: 59 Year
  Sex: Female
  Weight: 57.6 kg

DRUGS (4)
  1. NEXIUM [Suspect]
     Indication: GASTRITIS
     Route: 048
  2. XANAX [Concomitant]
  3. LEVOTHROID [Concomitant]
  4. PRILOSEC [Concomitant]
     Route: 048

REACTIONS (2)
  - CHILLS [None]
  - HEART RATE INCREASED [None]
